FAERS Safety Report 9346885 (Version 3)
Quarter: 2014Q1

REPORT INFORMATION
  Report Type: Spontaneous
  Country: US (occurrence: US)
  Receive Date: 20130613
  Receipt Date: 20140317
  Transmission Date: 20141002
  Serious: Yes (Death, Hospitalization)
  Sender: FDA-Public Use
  Company Number: US-B.I. PHARMACEUTICALS,INC./RIDGEFIELD-2013-BI-16589BP

PATIENT
  Age: 79 Year
  Sex: Male
  Weight: 63.5 kg

DRUGS (23)
  1. PRADAXA [Suspect]
     Indication: CEREBROVASCULAR ACCIDENT PROPHYLAXIS
     Dosage: 150 MG
     Route: 065
     Dates: start: 20110401, end: 20120409
  2. PRADAXA [Suspect]
     Indication: THROMBOSIS PROPHYLAXIS
  3. PRADAXA [Suspect]
     Indication: ATRIAL FIBRILLATION
  4. PROAIR [Concomitant]
     Route: 065
  5. FUROSEMIDE [Concomitant]
     Route: 065
  6. SODIUM CHLORIDE [Concomitant]
     Route: 065
  7. PREDNISONE [Concomitant]
     Dosage: 10 MG
     Route: 065
  8. GUAIFENESIN [Concomitant]
     Route: 065
  9. ADVAIR [Concomitant]
     Route: 065
  10. ATIVAN [Concomitant]
     Route: 065
  11. METOCLOPRAMIDE [Concomitant]
     Dosage: 20 MG
     Route: 065
  12. PANTOPRAZOLE [Concomitant]
     Dosage: 40 MG
     Route: 065
  13. TAMSULOSIN [Concomitant]
     Route: 065
  14. METOPROLOL [Concomitant]
     Route: 065
  15. LIPITOR [Concomitant]
     Route: 065
  16. CALCIUM PLUS D [Concomitant]
     Route: 065
  17. COLACE [Concomitant]
     Route: 065
  18. AVODART [Concomitant]
     Route: 065
  19. DUONEB [Concomitant]
     Route: 065
  20. FERREX 150+ [Concomitant]
     Route: 065
  21. POTASSIUM CHLORIDE [Concomitant]
     Route: 065
  22. SUCRALFATE [Concomitant]
     Route: 065
  23. SPIRIVA [Concomitant]
     Route: 065

REACTIONS (1)
  - Gastrointestinal haemorrhage [Fatal]
